FAERS Safety Report 16618621 (Version 1)
Quarter: 2019Q3

REPORT INFORMATION
  Report Type: Spontaneous
  Country: FR (occurrence: FR)
  Receive Date: 20190723
  Receipt Date: 20190723
  Transmission Date: 20191004
  Serious: Yes (Hospitalization)
  Sender: FDA-Public Use
  Company Number: FR-TEVA-2019-FR-1080966

PATIENT
  Age: 60 Year
  Sex: Female
  Weight: 78 kg

DRUGS (4)
  1. DEPAMIDE 300 MG, COMPRIM? PELLICUL? GASTRO-R?SISTANT [Suspect]
     Active Substance: VALPROMIDE
     Indication: BIPOLAR DISORDER
     Route: 048
  2. PAROXETINE (CHLORHYDRATE DE) ANHYDRE [Suspect]
     Active Substance: PAROXETINE
     Indication: ANXIETY
     Route: 048
  3. IMOVANE [Suspect]
     Active Substance: ZOPICLONE
     Indication: INSOMNIA
     Route: 048
  4. ABILIFY [Suspect]
     Active Substance: ARIPIPRAZOLE
     Indication: BIPOLAR DISORDER
     Route: 048

REACTIONS (2)
  - Dry eye [Recovered/Resolved]
  - Hepatic enzyme increased [Recovered/Resolved]

NARRATIVE: CASE EVENT DATE: 20180307
